FAERS Safety Report 19942906 (Version 1)
Quarter: 2021Q4

REPORT INFORMATION
  Report Type: Spontaneous
  Country: KR (occurrence: KR)
  Receive Date: 20211011
  Receipt Date: 20211011
  Transmission Date: 20220304
  Serious: Yes (Other)
  Sender: FDA-Public Use
  Company Number: KR-GLAXOSMITHKLINE-KR2021APC206320

PATIENT
  Age: 62 Year
  Sex: Male
  Weight: 60.6 kg

DRUGS (46)
  1. KIVEXA [Suspect]
     Active Substance: ABACAVIR SULFATE\LAMIVUDINE
     Indication: HIV infection
     Dosage: 1 MG
     Route: 048
     Dates: start: 10151203
  2. CICATRIZANTS [Concomitant]
     Indication: Prophylaxis
     Dosage: UNK
     Route: 061
     Dates: start: 20160105
  3. CICATRIZANTS [Concomitant]
     Dosage: UNK
     Route: 061
     Dates: start: 20160721
  4. SEROTONIN [Concomitant]
     Active Substance: SEROTONIN
     Indication: Prophylaxis
     Dosage: UNK
     Route: 042
     Dates: start: 20160105, end: 20160106
  5. SEROTONIN [Concomitant]
     Active Substance: SEROTONIN
     Dosage: UNK
     Route: 042
     Dates: start: 20160714, end: 20160715
  6. ACETYLCYSTEINE [Suspect]
     Active Substance: ACETYLCYSTEINE
     Indication: Prophylaxis
     Dosage: UNK
     Route: 042
     Dates: start: 20160105, end: 20160106
  7. ACETYLCYSTEINE [Suspect]
     Active Substance: ACETYLCYSTEINE
     Dosage: UNK
     Route: 042
     Dates: start: 20160714, end: 20160715
  8. ATORVASTATIN [Suspect]
     Active Substance: ATORVASTATIN
     Indication: Hyperlipidaemia
     Dosage: UNK
     Route: 048
     Dates: start: 20141203
  9. CEFAZEDONE [Suspect]
     Active Substance: CEFAZEDONE
     Indication: Prophylaxis
     Dosage: UNK
     Route: 042
     Dates: start: 20160105, end: 20160111
  10. CEFAZEDONE [Suspect]
     Active Substance: CEFAZEDONE
     Dosage: UNK
     Route: 042
     Dates: start: 20160714, end: 20160720
  11. CLOBETASOL [Suspect]
     Active Substance: CLOBETASOL
     Indication: Seborrhoeic dermatitis
     Dosage: UNK
     Route: 061
     Dates: start: 20160218
  12. DALTEPARIN [Suspect]
     Active Substance: DALTEPARIN
     Indication: Prophylaxis
     Dosage: UNK
     Route: 058
     Dates: start: 20160106, end: 20160115
  13. DALTEPARIN [Suspect]
     Active Substance: DALTEPARIN
     Dosage: UNK
     Route: 058
     Dates: start: 20160714, end: 20160721
  14. DICLOFENAC [Suspect]
     Active Substance: DICLOFENAC
     Indication: Prophylaxis
     Dosage: UNK
     Route: 058
     Dates: start: 20160716, end: 20160720
  15. DICLOFENAC [Suspect]
     Active Substance: DICLOFENAC
     Dosage: UNK
     Route: 058
     Dates: start: 20160720, end: 20160720
  16. FAMOTIDINE [Suspect]
     Active Substance: FAMOTIDINE
     Indication: Prophylaxis
     Dosage: UNK
     Route: 042
     Dates: start: 20160105, end: 20160106
  17. FAMOTIDINE [Suspect]
     Active Substance: FAMOTIDINE
     Dosage: UNK
     Route: 042
     Dates: start: 20160714, end: 20160715
  18. FLUNITRAZEPAM [Suspect]
     Active Substance: FLUNITRAZEPAM
     Indication: Sleep disorder
     Dosage: UNK
     Route: 048
  19. GLYCOPYRRONII BROMIDUM [Concomitant]
     Indication: Prophylaxis
     Dosage: UNK
     Route: 042
     Dates: start: 20160105, end: 20160105
  20. GLYCOPYRRONII BROMIDUM [Concomitant]
     Dosage: UNK
     Route: 042
     Dates: start: 20160714, end: 20160714
  21. HERBALS\PLANTAGO OVATA SEED [Concomitant]
     Active Substance: HERBALS\PLANTAGO OVATA SEED
     Indication: Constipation
     Dosage: UNK
     Route: 048
     Dates: start: 20160109, end: 20160109
  22. LACTULOSE [Concomitant]
     Active Substance: LACTULOSE
     Indication: Constipation
     Dosage: UNK
     Route: 048
     Dates: start: 20160110, end: 20160111
  23. LACTULOSE [Concomitant]
     Active Substance: LACTULOSE
     Dosage: UNK
     Route: 048
     Dates: start: 20160717, end: 20160721
  24. LORAZEPAM [Suspect]
     Active Substance: LORAZEPAM
     Indication: Depression
     Dosage: UNK
     Route: 048
  25. MAGNESIUM OXIDE [Suspect]
     Active Substance: MAGNESIUM OXIDE
     Indication: Constipation
     Dosage: UNK
     Dates: start: 20160106, end: 20160110
  26. MEGESTROL [Suspect]
     Active Substance: MEGESTROL
     Indication: Decreased appetite
     Dosage: UNK
     Route: 048
     Dates: start: 20160218, end: 20160413
  27. MEGESTROL [Suspect]
     Active Substance: MEGESTROL
     Dosage: UNK
     Route: 048
     Dates: start: 20160803, end: 20170817
  28. MIDAZOLAM [Suspect]
     Active Substance: MIDAZOLAM
     Indication: Prophylaxis
     Dosage: UNK
     Route: 048
     Dates: start: 20160105, end: 20160105
  29. MIDAZOLAM [Suspect]
     Active Substance: MIDAZOLAM
     Dosage: UNK
     Route: 048
     Dates: start: 20160714, end: 20160714
  30. MIRTAZAPINE [Suspect]
     Active Substance: MIRTAZAPINE
     Indication: Depression
     Dosage: UNK
  31. MUPIROCIN [Suspect]
     Active Substance: MUPIROCIN
     Indication: Prophylaxis
     Dosage: UNK
     Route: 045
     Dates: start: 20160711, end: 20160712
  32. NABUMETONE [Suspect]
     Active Substance: NABUMETONE
     Indication: Prophylaxis
     Dosage: UNK
     Route: 048
     Dates: start: 20160106, end: 20160710
  33. NABUMETONE [Suspect]
     Active Substance: NABUMETONE
     Dosage: UNK
     Route: 048
     Dates: start: 20160803, end: 20160927
  34. NIZATIDINE [Suspect]
     Active Substance: NIZATIDINE
     Indication: Prophylaxis
     Dosage: UNK
     Route: 048
     Dates: start: 20160116, end: 20160716
  35. NIZATIDINE [Suspect]
     Active Substance: NIZATIDINE
     Dosage: UNK
     Route: 048
     Dates: start: 20160716, end: 20160927
  36. MEPERIDINE [Suspect]
     Active Substance: MEPERIDINE
     Indication: Prophylaxis
     Dosage: UNK
     Route: 030
     Dates: start: 20160105, end: 20160106
  37. MEPERIDINE [Suspect]
     Active Substance: MEPERIDINE
     Dosage: UNK
     Route: 030
     Dates: start: 20160714, end: 20160716
  38. MEPERIDINE [Suspect]
     Active Substance: MEPERIDINE
     Dosage: UNK
     Route: 030
     Dates: start: 20160719, end: 20160719
  39. QUETIAPINE [Suspect]
     Active Substance: QUETIAPINE
     Indication: Depression
     Dosage: UNK
     Route: 048
  40. RALTEGRAVIR [Suspect]
     Active Substance: RALTEGRAVIR
     Indication: HIV infection
     Dosage: UNK
     Route: 048
     Dates: start: 20140814
  41. TRAMADOL [Suspect]
     Active Substance: TRAMADOL
     Indication: Prophylaxis
     Dosage: UNK
     Route: 042
     Dates: start: 20160105, end: 20160105
  42. ACETAMINOPHEN\TRAMADOL [Suspect]
     Active Substance: ACETAMINOPHEN\TRAMADOL
     Indication: Prophylaxis
     Dosage: UNK
     Route: 048
     Dates: start: 20160108, end: 20160308
  43. ACETAMINOPHEN\TRAMADOL [Suspect]
     Active Substance: ACETAMINOPHEN\TRAMADOL
     Dosage: UNK
     Route: 048
     Dates: start: 20160504, end: 20160710
  44. ACETAMINOPHEN\TRAMADOL [Suspect]
     Active Substance: ACETAMINOPHEN\TRAMADOL
     Dosage: UNK
     Route: 048
     Dates: start: 20160716, end: 20160928
  45. VENLAFAXINE [Suspect]
     Active Substance: VENLAFAXINE HYDROCHLORIDE
     Indication: Depression
     Dosage: UNK
     Route: 048
  46. ZOLPIDEM [Suspect]
     Active Substance: ZOLPIDEM TARTRATE
     Indication: Sleep disorder
     Dosage: UNK
     Route: 048

REACTIONS (4)
  - Faecaloma [Recovered/Resolved]
  - Adrenal insufficiency [Not Recovered/Not Resolved]
  - Anaemia [Recovered/Resolved]
  - Osteoarthritis [Recovered/Resolved]

NARRATIVE: CASE EVENT DATE: 20160104
